FAERS Safety Report 5267781-9 (Version None)
Quarter: 2007Q1

REPORT INFORMATION
  Report Type: 
  Country: None (occurrence: None)
  Receive Date: 20070316
  Receipt Date: 20070305
  Transmission Date: 20070707
  Serious: Yes (Other)
  Sender: FDA-Public Use
  Company Number: FR-PFIZER INC-2007017589

PATIENT
  Age: 79 Year
  Sex: Female

DRUGS (6)
  1. NEURONTIN [Suspect]
     Indication: NEURALGIA
     Dosage: DAILY DOSE:100MG
  2. PLAVIX [Concomitant]
  3. LASIX [Concomitant]
  4. LOXEN [Concomitant]
  5. COZAAR [Concomitant]
  6. NOVONORM [Concomitant]

REACTIONS (1)
  - BLISTER [None]
